FAERS Safety Report 9012738 (Version 3)
Quarter: 2014Q2

REPORT INFORMATION
  Report Type: Spontaneous
  Country: US (occurrence: US)
  Receive Date: 20130114
  Receipt Date: 20140609
  Transmission Date: 20141212
  Serious: Yes (Hospitalization, Disabling, Other)
  Sender: FDA-Public Use
  Company Number: US-009507513-1301USA005281

PATIENT
  Sex: Female
  Weight: 60.77 kg

DRUGS (2)
  1. NUVARING [Suspect]
     Indication: MENORRHAGIA
     Dosage: UNK
     Route: 067
     Dates: start: 200905, end: 200908
  2. NUVARING [Suspect]
     Indication: HOT FLUSH

REACTIONS (11)
  - Cholecystectomy [Unknown]
  - Pulmonary embolism [Recovered/Resolved]
  - Fibromyalgia [Unknown]
  - Rheumatoid arthritis [Unknown]
  - Hysterectomy [Unknown]
  - Asthma [Unknown]
  - Pneumonia [Unknown]
  - Gastrointestinal disorder [Unknown]
  - Pulmonary infarction [Unknown]
  - Low density lipoprotein increased [Unknown]
  - Off label use [Unknown]
